FAERS Safety Report 16025775 (Version 2)
Quarter: 2019Q1

REPORT INFORMATION
  Report Type: Spontaneous
  Country: IR (occurrence: IR)
  Receive Date: 20190302
  Receipt Date: 20190311
  Transmission Date: 20190418
  Serious: Yes (Hospitalization)
  Sender: FDA-Public Use
  Company Number: IR-SUN PHARMACEUTICAL INDUSTRIES LTD-2018R1-182701

PATIENT
  Age: 19 Year
  Sex: Female

DRUGS (1)
  1. IMIPRAMINE [Suspect]
     Active Substance: IMIPRAMINE
     Indication: PRODUCT USED FOR UNKNOWN INDICATION
     Dosage: UNK
     Route: 065

REACTIONS (13)
  - Loss of consciousness [Recovering/Resolving]
  - Arrhythmia [Recovering/Resolving]
  - Pulse absent [Recovering/Resolving]
  - Toxicity to various agents [Recovering/Resolving]
  - Bundle branch block right [Recovering/Resolving]
  - Lethargy [Recovering/Resolving]
  - Hypotension [Recovering/Resolving]
  - Supraventricular tachycardia [Recovering/Resolving]
  - Electrocardiogram QRS complex prolonged [Recovering/Resolving]
  - Drop attacks [Recovering/Resolving]
  - Palpitations [Recovering/Resolving]
  - Asthenia [Recovering/Resolving]
  - Haemodynamic instability [Recovering/Resolving]
